FAERS Safety Report 6658807-6 (Version None)
Quarter: 2010Q1

REPORT INFORMATION
  Report Type: 
  Country: None (occurrence: None)
  Receive Date: 20100330
  Receipt Date: 20100329
  Transmission Date: 20100710
  Serious: Yes (Death, Hospitalization, Other)
  Sender: FDA-Public Use
  Company Number: PHEH2008US06171

PATIENT
  Sex: Male

DRUGS (36)
  1. ZOMETA [Suspect]
     Dosage: UNK, QMO
     Dates: end: 20081119
  2. RADIATION THERAPY [Concomitant]
     Dosage: UNK
     Dates: start: 20081115
  3. CHEMOTHERAPEUTICS NOS [Concomitant]
  4. SYNTHROID [Concomitant]
  5. KETOCONAZOLE [Concomitant]
  6. PROTONIX [Concomitant]
  7. FLOMAX [Concomitant]
  8. KLOR-CON [Concomitant]
  9. PERIDEX [Concomitant]
  10. LORTAB [Concomitant]
  11. HYDROCODONE [Concomitant]
  12. NAPROXEN [Concomitant]
  13. CLINDAMYCIN [Concomitant]
     Dosage: 300 MG, UNK
  14. CHLORHEXIDINE GLUCONATE [Concomitant]
  15. DEXAMETHASONE [Concomitant]
  16. NAVELBINE [Concomitant]
  17. DECADRON [Concomitant]
  18. HYDROCORTISONE [Concomitant]
  19. CELEBREX [Concomitant]
  20. LUPRON [Concomitant]
  21. LEXAPRO [Concomitant]
  22. PREVACID [Concomitant]
  23. LASIX [Concomitant]
  24. COREG [Concomitant]
  25. METOPROLOL TARTRATE [Concomitant]
  26. PREDNISONE [Concomitant]
  27. ALPHAGAN [Concomitant]
  28. ALBUTEROL [Concomitant]
  29. SINGULAIR [Concomitant]
  30. POTASSIUM CHLORIDE [Concomitant]
  31. FUROSEMIDE [Concomitant]
  32. LISINOPRIL [Concomitant]
  33. DIGOXIN [Concomitant]
  34. FLUCONAZOLE [Concomitant]
  35. EMCYT [Concomitant]
  36. RISPERIDONE [Concomitant]

REACTIONS (31)
  - ANAEMIA [None]
  - ANXIETY [None]
  - ATRIAL FIBRILLATION [None]
  - BACK PAIN [None]
  - BONE PAIN [None]
  - CARDIAC FAILURE CONGESTIVE [None]
  - CHRONIC OBSTRUCTIVE PULMONARY DISEASE [None]
  - DEATH [None]
  - DEBRIDEMENT [None]
  - DEFORMITY [None]
  - DENTAL CARIES [None]
  - DYSKINESIA [None]
  - DYSPHAGIA [None]
  - EMOTIONAL DISTRESS [None]
  - EMPHYSEMA [None]
  - FAILURE TO THRIVE [None]
  - GAIT DISTURBANCE [None]
  - INFECTION [None]
  - JAW OPERATION [None]
  - METASTASES TO BONE [None]
  - METASTASES TO LUNG [None]
  - OSTEONECROSIS [None]
  - PAIN [None]
  - PHYSICAL DISABILITY [None]
  - PROSTATIC SPECIFIC ANTIGEN INCREASED [None]
  - PURULENT DISCHARGE [None]
  - RENAL FAILURE [None]
  - SPINAL CORD COMPRESSION [None]
  - SWELLING [None]
  - TOOTH EXTRACTION [None]
  - TOOTH FRACTURE [None]
